FAERS Safety Report 7270473-8 (Version None)
Quarter: 2011Q1

REPORT INFORMATION
  Report Type: 
  Country: None (occurrence: None)
  Receive Date: 20110202
  Receipt Date: 20110125
  Transmission Date: 20110831
  Serious: Yes (Hospitalization)
  Sender: FDA-Public Use
  Company Number: JP-MERCK-1101USA03433

PATIENT
  Age: 68 Year
  Sex: Male

DRUGS (5)
  1. JUZEN-TAIHO-TO [Suspect]
     Route: 048
  2. PEPCID [Suspect]
     Route: 048
  3. AZULFIDINE [Suspect]
     Route: 048
  4. CLINORIL [Concomitant]
     Route: 065
     Dates: start: 20090601, end: 20090801
  5. SELBEX [Suspect]
     Route: 048

REACTIONS (1)
  - LIVER DISORDER [None]
